FAERS Safety Report 7808366-7 (Version None)
Quarter: 2011Q4

REPORT INFORMATION
  Report Type: 
  Country: None (occurrence: None)
  Receive Date: 20111011
  Receipt Date: 20111011
  Transmission Date: 20120403
  Serious: Yes (Other)
  Sender: FDA-Public Use
  Company Number: None

PATIENT
  Age: 68 Year
  Sex: Male

DRUGS (5)
  1. HYDROMORPHONE HCL [Concomitant]
  2. ONDANSETRON [Concomitant]
  3. DOCUSATE [Concomitant]
  4. FENTANYL [Concomitant]
  5. REVLIMID [Suspect]
     Indication: MULTIPLE MYELOMA
     Dosage: REVLIMID 15MG DAILY X21D/28D ORALLY
     Route: 048
     Dates: start: 20110401

REACTIONS (2)
  - MUSCLE TWITCHING [None]
  - HALLUCINATION [None]
